FAERS Safety Report 21668927 (Version 2)
Quarter: 2023Q1

REPORT INFORMATION
  Report Type: Spontaneous
  Country: JP (occurrence: JP)
  Receive Date: 20221201
  Receipt Date: 20230317
  Transmission Date: 20230417
  Serious: Yes (Other)
  Sender: FDA-Public Use
  Company Number: JP-OTSUKA-2022_053140

PATIENT
  Age: 69 Year
  Sex: Male
  Weight: 51.6 kg

DRUGS (8)
  1. SAMSCA [Suspect]
     Active Substance: TOLVAPTAN
     Indication: Congenital cystic kidney disease
     Dosage: 15MG IN EARLY EVENING, DAILY DOSE
     Route: 048
     Dates: start: 20221114, end: 20221116
  2. SAMSCA [Suspect]
     Active Substance: TOLVAPTAN
     Dosage: 45MG IN MORNING, DAILY DOSE
     Route: 048
     Dates: start: 20221115, end: 20221116
  3. ASPIRIN [Concomitant]
     Active Substance: ASPIRIN
     Indication: Lacunar infarction
     Dosage: 100 MG/DAY (1 TABLET)
     Route: 065
  4. NEXIUM [Concomitant]
     Active Substance: ESOMEPRAZOLE MAGNESIUM
     Indication: Peptic ulcer
     Dosage: 20 MG/DAY (1C)
     Route: 065
  5. FEBUXOSTAT [Concomitant]
     Active Substance: FEBUXOSTAT
     Indication: Hyperuricaemia
     Dosage: 10 MG/DAY (1 TABLET)
     Route: 065
  6. NAFTOPIDIL [Concomitant]
     Active Substance: NAFTOPIDIL
     Indication: Benign prostatic hyperplasia
     Dosage: 75 MG/DAY (3 TABLETS)
     Route: 065
  7. AMLODIPINE BESYLATE [Concomitant]
     Active Substance: AMLODIPINE BESYLATE
     Indication: Hypertension
     Dosage: 2.5 MG/DAY (1 TABLET)
     Route: 065
  8. LIPIDIL [Concomitant]
     Active Substance: FENOFIBRATE
     Indication: Hypertriglyceridaemia
     Dosage: 160 MG/DAY (2 TABLETS)
     Route: 065

REACTIONS (3)
  - Hypothyroidism [Not Recovered/Not Resolved]
  - Blood creatine phosphokinase increased [Not Recovered/Not Resolved]
  - Fluid intake reduced [Unknown]

NARRATIVE: CASE EVENT DATE: 20221114
